FAERS Safety Report 6115870-9 (Version None)
Quarter: 2009Q1

REPORT INFORMATION
  Report Type: 
  Country: None (occurrence: None)
  Receive Date: 20090311
  Receipt Date: 20090306
  Transmission Date: 20090719
  Serious: Yes (Hospitalization)
  Sender: FDA-Public Use
  Company Number: 186940USA

PATIENT
  Age: 63 Year
  Sex: Female
  Weight: 54.4316 kg

DRUGS (7)
  1. ALENDRONATE SODIUM [Suspect]
     Indication: OSTEOPOROSIS
     Dosage: 70 MG (70 MG, 1 IN 1 WK), ORAL
     Route: 048
     Dates: start: 20060101
  2. CALCIUM [Concomitant]
  3. DYAZIDE [Concomitant]
  4. NEURONTIN [Concomitant]
  5. TOPAMAX [Concomitant]
  6. PREMPRO [Concomitant]
  7. LORATADINE [Concomitant]

REACTIONS (5)
  - ARTHRITIS [None]
  - FALL [None]
  - GAIT DISTURBANCE [None]
  - MUSCLE INJURY [None]
  - PATELLA FRACTURE [None]
